FAERS Safety Report 9679524 (Version 1)
Quarter: 2013Q4

REPORT INFORMATION
  Report Type: Spontaneous
  Country: US (occurrence: US)
  Receive Date: 20131109
  Receipt Date: 20131109
  Transmission Date: 20140711
  Serious: No
  Sender: FDA-Public Use
  Company Number: US-SANOFI-AVENTIS-2013SA077385

PATIENT
  Age: 64 Year
  Sex: Female

DRUGS (1)
  1. ALLEGRA-D [Suspect]
     Indication: SINUS HEADACHE
     Dosage: 180/240 MG.
     Route: 065
     Dates: start: 20130724, end: 20130726

REACTIONS (3)
  - Balance disorder [Not Recovered/Not Resolved]
  - Heart rate increased [Recovering/Resolving]
  - Dry mouth [Not Recovered/Not Resolved]
